FAERS Safety Report 8252953-1 (Version None)
Quarter: 2012Q2

REPORT INFORMATION
  Report Type: 
  Country: None (occurrence: None)
  Receive Date: 20120402
  Receipt Date: 20111230
  Transmission Date: 20120825
  Serious: No
  Sender: FDA-Public Use
  Company Number: US-ABBOTT-12P-163-0888653-00

PATIENT
  Sex: Male

DRUGS (6)
  1. UNKNOWN MEDICATION [Concomitant]
     Indication: OSTEOPOROSIS
  2. UNKNOWN MEDICATION [Concomitant]
     Indication: SLEEP DISORDER
  3. MORPHINE [Concomitant]
     Indication: PRODUCT USED FOR UNKNOWN INDICATION
  4. UNKNOWN MEDICATION [Concomitant]
     Indication: HIV INFECTION
     Dosage: POST CANCER
  5. UNKNOWN MEDICATION [Concomitant]
     Indication: AFFECTIVE DISORDER
  6. ANDROGEL [Suspect]
     Indication: BLOOD TESTOSTERONE DECREASED
     Dosage: 5 PUMPS PER DAY

REACTIONS (3)
  - SKIN REACTION [None]
  - SCAR [None]
  - ACNE [None]
